FAERS Safety Report 15555636 (Version 1)
Quarter: 2018Q4

REPORT INFORMATION
  Report Type: Spontaneous
  Country: US (occurrence: US)
  Receive Date: 20181026
  Receipt Date: 20181026
  Transmission Date: 20190205
  Serious: Yes (Other)
  Sender: FDA-Public Use
  Company Number: US-TEVA-2018-US-966993

PATIENT
  Sex: Female

DRUGS (1)
  1. AMIODARONE [Suspect]
     Active Substance: AMIODARONE
     Route: 041
     Dates: start: 20180311

REACTIONS (4)
  - Nightmare [Unknown]
  - Atrial fibrillation [Unknown]
  - Product substitution issue [Unknown]
  - Heart rate increased [Unknown]
